FAERS Safety Report 7330890-4 (Version None)
Quarter: 2011Q1

REPORT INFORMATION
  Report Type: 
  Country: None (occurrence: None)
  Receive Date: 20110225
  Receipt Date: 20110225
  Transmission Date: 20110831
  Serious: Yes (Hospitalization)
  Sender: FDA-Public Use
  Company Number: None

PATIENT
  Sex: Female
  Weight: 72 kg

DRUGS (4)
  1. BEVACIZUMAB (RHUMAB VEGF) [Suspect]
     Dosage: 361 MG
     Dates: end: 20110209
  2. LEUVOCORIN CALCIUM [Suspect]
     Dosage: 358 MG
     Dates: end: 20110209
  3. FLUOROURACIL [Suspect]
     Dosage: 5016 MG
     Dates: end: 20110210
  4. OXALIPLATIN (ELOXATIN) [Suspect]
     Dosage: 150 MG
     Dates: end: 20110209

REACTIONS (2)
  - PERITONITIS [None]
  - LARGE INTESTINE PERFORATION [None]
